FAERS Safety Report 6839135-2 (Version None)
Quarter: 2010Q2

REPORT INFORMATION
  Report Type: 
  Country: None (occurrence: None)
  Receive Date: 20100622
  Receipt Date: 20090728
  Transmission Date: 20101027
  Serious: Yes (Other)
  Sender: FDA-Public Use
  Company Number: 84611

PATIENT
  Age: 52 Year
  Sex: Male

DRUGS (1)
  1. VECURONIUM BROMIDE [Suspect]
     Indication: SURGERY
     Dosage: 10MG
     Dates: start: 20090728

REACTIONS (1)
  - DRUG INEFFECTIVE [None]
